FAERS Safety Report 19839898 (Version 2)
Quarter: 2021Q3

REPORT INFORMATION
  Report Type: Spontaneous
  Country: US (occurrence: US)
  Receive Date: 20210916
  Receipt Date: 20210922
  Transmission Date: 20211014
  Serious: No
  Sender: FDA-Public Use
  Company Number: US-ELI_LILLY_AND_COMPANY-US202109004408

PATIENT
  Age: 74 Year
  Sex: Male

DRUGS (4)
  1. COVID?19 VACCINE [Concomitant]
     Indication: PRODUCT USED FOR UNKNOWN INDICATION
  2. HUMALOG [Suspect]
     Active Substance: INSULIN LISPRO
     Indication: PRODUCT USED FOR UNKNOWN INDICATION
     Dosage: 22 U, UNKNOWN, BEFORE EVERY MEAL
     Route: 065
     Dates: start: 202103
  3. TRULICITY [Suspect]
     Active Substance: DULAGLUTIDE
     Indication: PRODUCT USED FOR UNKNOWN INDICATION
     Dosage: 1.5 MG, UNKNOWN
     Route: 065
     Dates: start: 20210909
  4. LANTUS [Concomitant]
     Active Substance: INSULIN GLARGINE
     Indication: PRODUCT USED FOR UNKNOWN INDICATION

REACTIONS (7)
  - Cataract [Unknown]
  - Blood glucose increased [Recovered/Resolved]
  - Dry age-related macular degeneration [Unknown]
  - Corneal lesion [Unknown]
  - Insulin resistance [Unknown]
  - Glycosylated haemoglobin increased [Unknown]
  - Blood glucose increased [Unknown]

NARRATIVE: CASE EVENT DATE: 202104
